FAERS Safety Report 17654860 (Version 1)
Quarter: 2020Q2

REPORT INFORMATION
  Report Type: Spontaneous
  Country: CH (occurrence: CH)
  Receive Date: 20200410
  Receipt Date: 20200410
  Transmission Date: 20200713
  Serious: Yes (Death, Life-Threatening, Hospitalization)
  Sender: FDA-Public Use
  Company Number: CH-PFIZER INC-2020144641

PATIENT
  Age: 80 Year
  Sex: Female
  Weight: 83 kg

DRUGS (1)
  1. CRIZOTINIB [Suspect]
     Active Substance: CRIZOTINIB
     Indication: METASTATIC SQUAMOUS CELL CARCINOMA
     Dosage: 250 MG, 2X/DAY
     Dates: start: 20200129, end: 20200310

REACTIONS (3)
  - Hepatic encephalopathy [Fatal]
  - Hepatitis acute [Fatal]
  - Acute hepatic failure [Fatal]

NARRATIVE: CASE EVENT DATE: 20200310
